FAERS Safety Report 25763062 (Version 1)
Quarter: 2025Q3

REPORT INFORMATION
  Report Type: Spontaneous
  Country: EU (occurrence: EU)
  Receive Date: 20250904
  Receipt Date: 20250904
  Transmission Date: 20251020
  Serious: Yes (Other)
  Sender: BIOGEN
  Company Number: EU-BIOGEN-2025BI01311792

PATIENT
  Age: 22 Year
  Sex: Female

DRUGS (2)
  1. SKYCLARYS [Suspect]
     Active Substance: OMAVELOXOLONE
     Indication: Friedreich^s ataxia
     Route: 050
     Dates: start: 202406
  2. APIXABAN [Concomitant]
     Active Substance: APIXABAN
     Indication: Venous thrombosis
     Route: 050

REACTIONS (5)
  - Ventricular tachycardia [Unknown]
  - Fluid retention [Unknown]
  - Muscle spasms [Recovered/Resolved]
  - Brain natriuretic peptide increased [Unknown]
  - Troponin increased [Unknown]

NARRATIVE: CASE EVENT DATE: 20240901
